FAERS Safety Report 7873173-6 (Version None)
Quarter: 2011Q4

REPORT INFORMATION
  Report Type: 
  Country: None (occurrence: None)
  Receive Date: 20111030
  Receipt Date: 20110425
  Transmission Date: 20120403
  Serious: No
  Sender: FDA-Public Use
  Company Number: US-AMGEN-USASP2011021405

PATIENT
  Age: 55 Year
  Sex: Female

DRUGS (1)
  1. ENBREL [Suspect]
     Indication: PSORIATIC ARTHROPATHY
     Dosage: 50 MG, QWK
     Dates: start: 20110415

REACTIONS (6)
  - NAUSEA [None]
  - VOMITING [None]
  - PYREXIA [None]
  - MYALGIA [None]
  - DIARRHOEA [None]
  - CHILLS [None]
